FAERS Safety Report 5407020-9 (Version None)
Quarter: 2007Q3

REPORT INFORMATION
  Report Type: 
  Country: None (occurrence: None)
  Receive Date: 20070803
  Receipt Date: 20070803
  Transmission Date: 20080115
  Serious: Yes (Hospitalization)
  Sender: FDA-Public Use
  Company Number: None

PATIENT
  Age: 45 Year
  Sex: Male

DRUGS (2)
  1. WARFARIN SODIUM [Suspect]
     Indication: PULMONARY EMBOLISM
     Dosage: 5MG HS PO
     Route: 048
     Dates: start: 20070711, end: 20070720
  2. WARFARIN SODIUM [Suspect]
     Indication: THROMBOPHLEBITIS
     Dosage: 5MG HS PO
     Route: 048
     Dates: start: 20070711, end: 20070720

REACTIONS (1)
  - INTERNATIONAL NORMALISED RATIO ABNORMAL [None]
